FAERS Safety Report 5750080-6 (Version None)
Quarter: 2008Q2

REPORT INFORMATION
  Report Type: 
  Country: None (occurrence: None)
  Receive Date: 20080527
  Receipt Date: 20080515
  Transmission Date: 20081010
  Serious: Yes (Death, Hospitalization)
  Sender: FDA-Public Use
  Company Number: US-PFIZER INC-2007027566

PATIENT
  Sex: Male
  Weight: 58 kg

DRUGS (9)
  1. SUTENT [Suspect]
     Indication: PROSTATE CANCER
     Route: 048
     Dates: start: 20070327, end: 20070405
  2. CALCIUM [Concomitant]
     Route: 048
  3. ZINC [Concomitant]
     Route: 048
  4. VITAMIN D [Concomitant]
     Route: 048
  5. LUPRON [Concomitant]
     Route: 030
  6. PAMIDRONATE DISODIUM [Concomitant]
     Dates: end: 20070407
  7. DARVOCET-N [Concomitant]
     Dosage: TEXT:1-2 TABS-FREQ:Q 4-6 HR
     Route: 048
  8. PREDNISONE TAB [Concomitant]
     Route: 048
  9. FAMOTIDINE [Concomitant]

REACTIONS (5)
  - DEHYDRATION [None]
  - DIARRHOEA [None]
  - HYDRONEPHROSIS [None]
  - RENAL FAILURE ACUTE [None]
  - SEPSIS [None]
